FAERS Safety Report 8073477-0 (Version None)
Quarter: 2012Q1

REPORT INFORMATION
  Report Type: 
  Country: None (occurrence: None)
  Receive Date: 20120126
  Receipt Date: 20120126
  Transmission Date: 20120608
  Serious: Yes (Hospitalization)
  Sender: FDA-Public Use
  Company Number: None

PATIENT
  Age: 32 Year
  Sex: Male
  Weight: 82.1 kg

DRUGS (1)
  1. QUETIAPINE [Suspect]
     Indication: BIPOLAR DISORDER
     Dosage: 800MG
     Route: 048

REACTIONS (1)
  - PANCREATITIS ACUTE [None]
